FAERS Safety Report 14488130 (Version 1)
Quarter: 2018Q1

REPORT INFORMATION
  Report Type: Report from Study
  Country: US (occurrence: US)
  Receive Date: 20180205
  Receipt Date: 20180205
  Transmission Date: 20180509
  Serious: Yes (Other)
  Sender: FDA-Public Use
  Company Number: US-TAKEDA-2018TUS003001

PATIENT
  Sex: Female

DRUGS (1)
  1. PONATINIB [Suspect]
     Active Substance: PONATINIB
     Indication: ACUTE LYMPHOCYTIC LEUKAEMIA
     Dosage: 15 MG, QD
     Route: 048
     Dates: start: 20161202

REACTIONS (20)
  - Graft versus host disease in eye [Unknown]
  - Cataract operation [Unknown]
  - Blood urea increased [Unknown]
  - Arthralgia [Unknown]
  - Hypertension [Unknown]
  - Streptococcal bacteraemia [Unknown]
  - Hyperuricaemia [Unknown]
  - Cholecystitis [Unknown]
  - Blood alkaline phosphatase increased [Unknown]
  - Clostridium difficile colitis [Unknown]
  - Peripheral swelling [Unknown]
  - Alanine aminotransferase increased [Unknown]
  - Cytomegalovirus viraemia [Unknown]
  - Klebsiella bacteraemia [Unknown]
  - Rash macular [Unknown]
  - Transaminases increased [Unknown]
  - Enterococcal infection [Unknown]
  - Photosensitivity reaction [Unknown]
  - Aspartate aminotransferase increased [Unknown]
  - Blood creatinine increased [Unknown]
